FAERS Safety Report 23472541 (Version 1)
Quarter: 2024Q1

REPORT INFORMATION
  Report Type: Report from Study
  Country: GB (occurrence: GB)
  Receive Date: 20240202
  Receipt Date: 20240202
  Transmission Date: 20240409
  Serious: Yes (Hospitalization)
  Sender: FDA-Public Use
  Company Number: GB-TEVA-VS-3150892

PATIENT
  Sex: Female

DRUGS (1)
  1. AJOVY [Suspect]
     Active Substance: FREMANEZUMAB-VFRM
     Indication: Migraine
     Route: 058

REACTIONS (1)
  - Gastrointestinal disorder [Unknown]
